FAERS Safety Report 5710357-7 (Version None)
Quarter: 2008Q2

REPORT INFORMATION
  Report Type: 
  Country: None (occurrence: None)
  Receive Date: 20080418
  Receipt Date: 20080409
  Transmission Date: 20081010
  Serious: Yes (Other)
  Sender: FDA-Public Use
  Company Number: US-PFIZER INC-2008031473

PATIENT
  Sex: Female

DRUGS (12)
  1. CELEBREX [Suspect]
     Indication: OSTEOPOROSIS
  2. CELEBREX [Suspect]
     Indication: OSTEOARTHRITIS
  3. CELEBREX [Suspect]
     Indication: RHEUMATOID ARTHRITIS
  4. MOTRIN [Suspect]
     Indication: OSTEOPOROSIS
  5. MOTRIN [Suspect]
     Indication: OSTEOARTHRITIS
  6. MOTRIN [Suspect]
     Indication: RHEUMATOID ARTHRITIS
  7. PERCOCET [Concomitant]
  8. PRILOSEC [Concomitant]
  9. NEURONTIN [Concomitant]
  10. SOMA [Concomitant]
  11. VERAPAMIL [Concomitant]
     Indication: CARDIAC DISORDER
  12. VITAMIN B-12 [Concomitant]
     Indication: ANAEMIA

REACTIONS (3)
  - GASTRIC ULCER [None]
  - GASTROINTESTINAL HAEMORRHAGE [None]
  - VITAMIN B12 DECREASED [None]
